FAERS Safety Report 8585786-7 (Version None)
Quarter: 2012Q3

REPORT INFORMATION
  Report Type: 
  Country: None (occurrence: None)
  Receive Date: 20120810
  Receipt Date: 20120807
  Transmission Date: 20120928
  Serious: Yes (Life-Threatening)
  Sender: FDA-Public Use
  Company Number: JP-B.I. PHARMACEUTICALS,INC./RIDGEFIELD-2012-BP-17627NB

PATIENT
  Age: 91 Year
  Sex: Female

DRUGS (19)
  1. EPADEL S [Concomitant]
     Dosage: 1800 MG
     Route: 065
  2. ALLOPURINOL [Concomitant]
     Route: 065
  3. IRBESARTAN [Concomitant]
     Dosage: 100 MG
     Route: 065
  4. ARGAMATE [Concomitant]
     Route: 065
  5. ASPIRIN [Concomitant]
     Route: 065
  6. DIGOXIN [Concomitant]
     Dosage: 0.125 MG
     Route: 065
  7. MAGMITT [Concomitant]
     Dosage: 330 MG
     Route: 065
  8. VITANEURIN [Concomitant]
     Route: 065
  9. FAMOSTAGINE-D [Concomitant]
     Route: 065
  10. FUROSEMIDE [Concomitant]
     Dosage: 20 MG
     Route: 065
  11. ARIMIDEX [Concomitant]
     Route: 065
  12. POLAPREZINC [Concomitant]
     Route: 065
  13. ZOLPIDEM [Concomitant]
     Dosage: 5 MG
     Route: 065
  14. BEZAFIBRATE [Concomitant]
     Route: 065
  15. MILNAC [Concomitant]
     Route: 065
  16. TRAZENTA [Suspect]
     Indication: DIABETES MELLITUS
     Dosage: 5 MG
     Route: 048
     Dates: start: 20120605, end: 20120807
  17. ZETIA [Concomitant]
     Route: 065
  18. SHAKUYAKUKANZOTO [Concomitant]
     Route: 065
  19. SENNOSIDE [Concomitant]
     Route: 065

REACTIONS (1)
  - HYPOGLYCAEMIA [None]
